FAERS Safety Report 5602210-4 (Version None)
Quarter: 2008Q1

REPORT INFORMATION
  Report Type: 
  Country: None (occurrence: None)
  Receive Date: 20080125
  Receipt Date: 20080117
  Transmission Date: 20080703
  Serious: Yes (Hospitalization)
  Sender: FDA-Public Use
  Company Number: PHHO2006US17941

PATIENT
  Age: 47 Year
  Sex: Female
  Weight: 71 kg

DRUGS (13)
  1. FEMARA [Suspect]
     Indication: BREAST CANCER
     Dosage: UNK, UNK
  2. FEMARA [Suspect]
     Dates: start: 20061108
  3. PTK787/ZK222584 [Suspect]
     Indication: BREAST CANCER
     Dosage: 250 MG, BID
     Route: 048
     Dates: start: 20061012, end: 20061018
  4. PTK787/ZK222584 [Suspect]
     Dosage: 500 MG, BID
     Route: 048
     Dates: start: 20061019, end: 20061024
  5. GLUCOPHAGE [Concomitant]
     Dosage: 1000 MG, BID
     Route: 048
  6. XANAX [Concomitant]
     Dosage: 0.5 MG, QD
     Route: 048
  7. ZOLOFT [Concomitant]
     Dosage: 50 MG, QD
     Route: 048
  8. TEGRETOL [Concomitant]
     Dosage: 150 MG, BID
     Route: 048
  9. CLONIDINE [Concomitant]
     Dosage: 0.1 MG, QW
  10. ATIVAN [Concomitant]
  11. LANTUS [Concomitant]
  12. POTASSIUM CHLORIDE [Concomitant]
  13. MACROBID [Concomitant]

REACTIONS (12)
  - CONFUSIONAL STATE [None]
  - DEHYDRATION [None]
  - DEPRESSED LEVEL OF CONSCIOUSNESS [None]
  - HEADACHE [None]
  - HYPERGLYCAEMIA [None]
  - MENTAL STATUS CHANGES [None]
  - NAUSEA [None]
  - SEIZURE ANOXIC [None]
  - SYNCOPE [None]
  - THROMBOSIS [None]
  - URINARY TRACT INFECTION [None]
  - VOMITING [None]
